FAERS Safety Report 9962164 (Version 1)
Quarter: 2014Q1

REPORT INFORMATION
  Report Type: Report from Study
  Country: US (occurrence: US)
  Receive Date: 20140305
  Receipt Date: 20140305
  Transmission Date: 20141002
  Serious: No
  Sender: FDA-Public Use
  Company Number: US-ABBVIE-13P-163-1114832-00

PATIENT
  Age: 47 Year
  Sex: Female

DRUGS (17)
  1. HUMIRA [Suspect]
     Indication: CROHN^S DISEASE
     Dates: start: 20130520
  2. VITAMIN B 12 [Concomitant]
     Indication: PRODUCT USED FOR UNKNOWN INDICATION
  3. VITAMIN C [Concomitant]
     Indication: PRODUCT USED FOR UNKNOWN INDICATION
  4. VITAMIN D3 WITH A [Concomitant]
     Indication: PRODUCT USED FOR UNKNOWN INDICATION
  5. FOLIC ACID [Concomitant]
     Indication: PRODUCT USED FOR UNKNOWN INDICATION
  6. ZINC [Concomitant]
     Indication: PRODUCT USED FOR UNKNOWN INDICATION
  7. PROBIOTIC [Concomitant]
     Indication: PRODUCT USED FOR UNKNOWN INDICATION
  8. FIBERCON [Concomitant]
     Indication: PRODUCT USED FOR UNKNOWN INDICATION
  9. MYZILRA [Concomitant]
     Indication: PRODUCT USED FOR UNKNOWN INDICATION
  10. IMODIUM [Concomitant]
     Indication: PRODUCT USED FOR UNKNOWN INDICATION
  11. OXYCODONE [Concomitant]
     Indication: PAIN
  12. VALACYCLOVIR HCL PHARMA PAC [Concomitant]
     Indication: PRODUCT USED FOR UNKNOWN INDICATION
  13. VALACYCLOVIR HCL PHARMA PAC [Concomitant]
     Dosage: 500 MG 2 TABS DAILY
  14. VALACYCLOVIR HCL PHARMA PAC [Concomitant]
     Dosage: 500 MG 1 TAB DAILY
  15. AMBIEN [Concomitant]
     Indication: PRODUCT USED FOR UNKNOWN INDICATION
     Dosage: AT BEDTIME
  16. SULFAMETHOXAZOLE [Concomitant]
     Indication: URINARY TRACT INFECTION
     Dates: start: 20130429, end: 20130512
  17. PREDNISONE [Concomitant]
     Indication: PRODUCT USED FOR UNKNOWN INDICATION
     Dosage: WAS TAPERING BY 5 MG WEEKLY
     Dates: end: 20130627

REACTIONS (8)
  - Unevaluable event [Not Recovered/Not Resolved]
  - Pyrexia [Not Recovered/Not Resolved]
  - Dizziness [Not Recovered/Not Resolved]
  - Fatigue [Not Recovered/Not Resolved]
  - Nausea [Not Recovered/Not Resolved]
  - Decreased appetite [Not Recovered/Not Resolved]
  - Frequent bowel movements [Not Recovered/Not Resolved]
  - Diarrhoea [Not Recovered/Not Resolved]
